FAERS Safety Report 10199616 (Version 1)
Quarter: 2014Q2

REPORT INFORMATION
  Report Type: Spontaneous
  Country: US (occurrence: None)
  Receive Date: 20140523
  Receipt Date: 20140523
  Transmission Date: 20141212
  Serious: Yes (Other)
  Sender: FDA-Public Use
  Company Number: None

PATIENT
  Age: 47 Year
  Sex: Female
  Weight: 68.04 kg

DRUGS (1)
  1. MIRVASO GALDERMA [Suspect]
     Indication: ROSACEA
     Dosage: TOPICAL?ONCE DAILY?APPLIED TO A SURFACE, USUALLY THE SKIN
     Route: 061
     Dates: start: 20140319, end: 20140321

REACTIONS (6)
  - Erythema [None]
  - Feeling hot [None]
  - Pruritus [None]
  - Eye irritation [None]
  - Inflammation [None]
  - Capillary disorder [None]
